FAERS Safety Report 10060667 (Version 1)
Quarter: 2014Q2

REPORT INFORMATION
  Report Type: Spontaneous
  Country: GB (occurrence: GB)
  Receive Date: 20140404
  Receipt Date: 20140404
  Transmission Date: 20141212
  Serious: Yes (Other)
  Sender: FDA-Public Use
  Company Number: GB-ACTAVISPR-2014-06358

PATIENT
  Age: 84 Year
  Sex: Female

DRUGS (3)
  1. LEVOTHYROXINE ACTAVIS [Suspect]
     Indication: HYPOTHYROIDISM
     Dosage: 50 MCG, DAILY
     Route: 048
  2. METFORMIN (UNKNOWN) [Suspect]
     Indication: DIABETES MELLITUS
     Dosage: UNK
     Route: 065
  3. LEVOTHYROXINE [Suspect]
     Indication: HYPOTHYROIDISM
     Dosage: 25 MCG, DAILY
     Route: 048

REACTIONS (2)
  - Cardiac disorder [Unknown]
  - Drug interaction [Unknown]
